FAERS Safety Report 17019863 (Version 1)
Quarter: 2019Q4

REPORT INFORMATION
  Report Type: Spontaneous
  Country: US (occurrence: US)
  Receive Date: 20191007
  Receipt Date: 20191007
  Transmission Date: 20200122
  Serious: No
  Sender: FDA-Public Use
  Company Number: None

PATIENT
  Sex: Female

DRUGS (1)
  1. IMATINIB MESYLATE 400 MG NORTHSTAR RX [Suspect]
     Active Substance: IMATINIB MESYLATE
     Indication: GASTROINTESTINAL STROMAL TUMOUR
     Route: 048
     Dates: start: 20181211

REACTIONS (8)
  - Ocular discomfort [None]
  - Vomiting [None]
  - Dizziness [None]
  - Chromaturia [None]
  - Feeling abnormal [None]
  - Diarrhoea [None]
  - Visual impairment [None]
  - Nausea [None]
